FAERS Safety Report 15362176 (Version 1)
Quarter: 2018Q3

REPORT INFORMATION
  Report Type: Spontaneous
  Country: ES (occurrence: ES)
  Receive Date: 20180907
  Receipt Date: 20180907
  Transmission Date: 20181010
  Serious: Yes (Other)
  Sender: FDA-Public Use
  Company Number: ES-ALLERGAN-1843343US

PATIENT
  Age: 69 Year
  Sex: Male

DRUGS (1)
  1. SILODOSIN UNK [Suspect]
     Active Substance: SILODOSIN
     Indication: PRODUCT USED FOR UNKNOWN INDICATION
     Route: 065

REACTIONS (4)
  - Macroglossia [Unknown]
  - Palatal oedema [Unknown]
  - Hypersensitivity [Unknown]
  - Pruritus [Unknown]
